FAERS Safety Report 25808655 (Version 1)
Quarter: 2025Q3

REPORT INFORMATION
  Report Type: Spontaneous
  Country: CN (occurrence: CN)
  Receive Date: 20250916
  Receipt Date: 20250916
  Transmission Date: 20251021
  Serious: Yes (Other)
  Sender: MYLAN
  Company Number: CN-MYLANLABS-2025M1077982

PATIENT
  Age: 48 Year
  Sex: Male

DRUGS (4)
  1. CARDURA XL [Suspect]
     Active Substance: DOXAZOSIN MESYLATE
     Indication: Product used for unknown indication
     Dosage: 1 DOSAGE FORM, QD
  2. CARDURA XL [Suspect]
     Active Substance: DOXAZOSIN MESYLATE
     Dosage: 1 DOSAGE FORM, QD
     Route: 065
  3. CARDURA XL [Suspect]
     Active Substance: DOXAZOSIN MESYLATE
     Dosage: 1 DOSAGE FORM, QD
     Route: 065
  4. CARDURA XL [Suspect]
     Active Substance: DOXAZOSIN MESYLATE
     Dosage: 1 DOSAGE FORM, QD

REACTIONS (6)
  - Syncope [Unknown]
  - Nasal congestion [Unknown]
  - Somnolence [Unknown]
  - Abdominal pain [Unknown]
  - Dry mouth [Unknown]
  - Drug ineffective [Unknown]
